FAERS Safety Report 7335501-X (Version None)
Quarter: 2011Q1

REPORT INFORMATION
  Report Type: 
  Country: None (occurrence: None)
  Receive Date: 20110301
  Receipt Date: 20110301
  Transmission Date: 20110831
  Serious: Yes (Disabling)
  Sender: FDA-Public Use
  Company Number: None

PATIENT
  Weight: 108.8633 kg

DRUGS (2)
  1. ALENDRONATE SODIUM [Suspect]
  2. FOSAMAX [Suspect]
     Indication: OSTEOPOROSIS
     Dosage: 1- MG 35MG WEEKLY
     Dates: start: 20000101, end: 20090101

REACTIONS (4)
  - ILIUM FRACTURE [None]
  - GAIT DISTURBANCE [None]
  - PAIN [None]
  - FALL [None]
